FAERS Safety Report 10954585 (Version 3)
Quarter: 2015Q2

REPORT INFORMATION
  Report Type: Spontaneous
  Country: US (occurrence: US)
  Receive Date: 20150325
  Receipt Date: 20150603
  Transmission Date: 20150821
  Serious: No
  Sender: FDA-Public Use
  Company Number: US-GLAXOSMITHKLINE-US2015038360

PATIENT
  Age: 48 Year
  Sex: Female
  Weight: 93.88 kg

DRUGS (9)
  1. SIMVASTATIN. [Concomitant]
     Active Substance: SIMVASTATIN
  2. CELEBREX [Concomitant]
     Active Substance: CELECOXIB
  3. HYDROXYCHLOROQUINE [Concomitant]
     Active Substance: HYDROXYCHLOROQUINE
  4. BUTALBITAL [Concomitant]
     Active Substance: BUTALBITAL
  5. IMURAN [Concomitant]
     Active Substance: AZATHIOPRINE
  6. BENLYSTA [Suspect]
     Active Substance: BELIMUMAB
     Indication: SYSTEMIC LUPUS ERYTHEMATOSUS
     Dosage: 920 MG, 250 ML/HR, U
     Route: 042
     Dates: start: 20110919
  7. BENLYSTA [Suspect]
     Active Substance: BELIMUMAB
     Dosage: 920 MG, UNK
  8. PROPRANOLOL [Concomitant]
     Active Substance: PROPRANOLOL\PROPRANOLOL HYDROCHLORIDE
  9. ALPRAZOLAM. [Concomitant]
     Active Substance: ALPRAZOLAM

REACTIONS (2)
  - Pyrexia [Recovered/Resolved]
  - Arthralgia [Unknown]

NARRATIVE: CASE EVENT DATE: 20150227
